FAERS Safety Report 10419609 (Version 1)
Quarter: 2014Q3

REPORT INFORMATION
  Report Type: Spontaneous
  Country: IT (occurrence: IT)
  Receive Date: 20140829
  Receipt Date: 20140829
  Transmission Date: 20150326
  Serious: Yes (Hospitalization)
  Sender: FDA-Public Use
  Company Number: IT-PFIZER INC-2014239410

PATIENT
  Age: 40 Year
  Sex: Male
  Weight: 75 kg

DRUGS (3)
  1. XANAX [Interacting]
     Active Substance: ALPRAZOLAM
     Indication: PSYCHOTIC DISORDER
     Dosage: 75 UG, TOTAL DOSAGE
     Route: 048
  2. EFFEXOR [Suspect]
     Active Substance: VENLAFAXINE HYDROCHLORIDE
     Indication: PSYCHOTIC DISORDER
     Dosage: 75 MG, TOTAL DOSAGE
     Route: 048
  3. METADONE CLORIDRATO AFOM [Interacting]
     Active Substance: METHADONE HYDROCHLORIDE
     Indication: DRUG DEPENDENCE, POSTPARTUM
     Dosage: 10 MG, TOTAL DOSAGE
     Route: 048

REACTIONS (7)
  - Dysarthria [Recovered/Resolved with Sequelae]
  - Drug interaction [Recovered/Resolved with Sequelae]
  - Hypertensive crisis [Recovered/Resolved with Sequelae]
  - Convulsion [Recovered/Resolved with Sequelae]
  - Anuria [Recovered/Resolved with Sequelae]
  - Hyperreflexia [Recovered/Resolved with Sequelae]
  - Muscle twitching [Recovered/Resolved with Sequelae]

NARRATIVE: CASE EVENT DATE: 20140819
